FAERS Safety Report 9203322 (Version 3)
Quarter: 2013Q2

REPORT INFORMATION
  Report Type: Spontaneous
  Country: US (occurrence: US)
  Receive Date: 20130402
  Receipt Date: 20130517
  Transmission Date: 20140414
  Serious: Yes (Other)
  Sender: FDA-Public Use
  Company Number: US-JNJFOC-20130314821

PATIENT
  Age: 52 Year
  Sex: Female

DRUGS (4)
  1. TOPAMAX [Suspect]
     Indication: CONVULSION
     Route: 048
  2. TOPAMAX [Suspect]
     Indication: MIGRAINE PROPHYLAXIS
     Route: 048
  3. REBIF [Suspect]
     Indication: MULTIPLE SCLEROSIS
     Route: 058
     Dates: start: 20120713
  4. LEVETIRACETAM [Concomitant]
     Indication: PRODUCT USED FOR UNKNOWN INDICATION
     Route: 065

REACTIONS (9)
  - Nephrolithiasis [Unknown]
  - Herpes zoster [Unknown]
  - Convulsion [Unknown]
  - Large intestine polyp [Unknown]
  - Decreased appetite [Unknown]
  - Abdominal distension [Unknown]
  - Post herpetic neuralgia [Unknown]
  - Gastrointestinal disorder [Unknown]
  - Stress [Unknown]
